FAERS Safety Report 5285029-6 (Version None)
Quarter: 2007Q2

REPORT INFORMATION
  Report Type: 
  Country: None (occurrence: None)
  Receive Date: 20070403
  Receipt Date: 20070323
  Transmission Date: 20071010
  Serious: Yes (Death, Hospitalization)
  Sender: FDA-Public Use
  Company Number: US-PFIZER INC-2007014422

PATIENT
  Age: 55 Year
  Sex: Female
  Weight: 91 kg

DRUGS (5)
  1. SUTENT [Suspect]
     Indication: METASTATIC MALIGNANT MELANOMA
     Route: 048
     Dates: start: 20061204, end: 20070203
  2. DACARBAZINE [Suspect]
     Indication: METASTATIC MALIGNANT MELANOMA
     Route: 042
     Dates: start: 20061204, end: 20070125
  3. OXYCONTIN [Concomitant]
     Route: 048
  4. OXYCODONE HCL [Concomitant]
     Route: 048
  5. ARANESP [Concomitant]
     Route: 058
     Dates: start: 20070125

REACTIONS (1)
  - DEATH [None]
